FAERS Safety Report 4880872-7 (Version None)
Quarter: 2005Q4

REPORT INFORMATION
  Report Type: 
  Country: None (occurrence: None)
  Receive Date: 20051223
  Receipt Date: 20051111
  Transmission Date: 20060501
  Serious: No
  Sender: FDA-Public Use
  Company Number: 05P-163-0317091-00

PATIENT
  Age: 40 Year
  Sex: Female
  Weight: 119.1 kg

DRUGS (3)
  1. HUMIRA [Suspect]
     Indication: RHEUMATOID ARTHRITIS
     Dosage: 40 MG, 1 IN 2 WKS, SUBCUTANEOUS
     Route: 058
     Dates: start: 20051007
  2. METHOTREXATE [Concomitant]
  3. NABUMETONE [Concomitant]

REACTIONS (3)
  - BLOOD PRESSURE INCREASED [None]
  - EYE SWELLING [None]
  - PYREXIA [None]
